FAERS Safety Report 20529062 (Version 2)
Quarter: 2022Q1

REPORT INFORMATION
  Report Type: Spontaneous
  Country: US (occurrence: US)
  Receive Date: 20220228
  Receipt Date: 20220314
  Transmission Date: 20220423
  Serious: Yes (Death, Life-Threatening, Hospitalization, Other)
  Sender: FDA-Public Use
  Company Number: US-MLMSERVICE-20220211-3372283-1

PATIENT
  Age: 32 Year
  Sex: Male

DRUGS (4)
  1. METHYLPREDNISOLONE [Suspect]
     Active Substance: METHYLPREDNISOLONE
     Indication: Autoimmune encephalopathy
     Dosage: UNK
  2. CYCLOPHOSPHAMIDE [Suspect]
     Active Substance: CYCLOPHOSPHAMIDE
     Indication: Autoimmune encephalopathy
     Dosage: UNK
  3. ANAKINRA [Suspect]
     Active Substance: ANAKINRA
     Indication: Autoimmune encephalopathy
     Dosage: UNK
  4. TOCILIZUMAB [Suspect]
     Active Substance: TOCILIZUMAB
     Indication: Autoimmune encephalopathy
     Dosage: UNK

REACTIONS (2)
  - Disseminated mucormycosis [Fatal]
  - Cutaneous mucormycosis [Fatal]
